FAERS Safety Report 7590376-9 (Version None)
Quarter: 2011Q2

REPORT INFORMATION
  Report Type: 
  Country: None (occurrence: None)
  Receive Date: 20110627
  Receipt Date: 20110614
  Transmission Date: 20111010
  Serious: Yes (Other)
  Sender: FDA-Public Use
  Company Number: 1000021710

PATIENT
  Sex: Male
  Weight: 87 kg

DRUGS (1)
  1. ESCITALOPRAM [Suspect]
     Indication: PANIC DISORDER
     Dosage: OVERDOSE 30 MG (30 MG, 1 IN 1 D), ORAL
     Route: 048
     Dates: end: 20110401

REACTIONS (4)
  - DIZZINESS [None]
  - PANIC ATTACK [None]
  - DISEASE RECURRENCE [None]
  - WEIGHT INCREASED [None]
